FAERS Safety Report 8192958-2 (Version None)
Quarter: 2012Q1

REPORT INFORMATION
  Report Type: 
  Country: None (occurrence: None)
  Receive Date: 20120308
  Receipt Date: 20120229
  Transmission Date: 20120608
  Serious: Yes (Hospitalization)
  Sender: FDA-Public Use
  Company Number: IT-BRISTOL-MYERS SQUIBB COMPANY-16426629

PATIENT
  Age: 79 Year
  Sex: Female

DRUGS (10)
  1. COUMADIN [Suspect]
     Indication: CARDIAC VALVE PROSTHESIS USER
     Dosage: 1DF:1DOSE DRUG INTERRUPTED ON 16FEB12
     Route: 048
     Dates: start: 19990101
  2. PROPAFENONE HCL [Concomitant]
     Dosage: NUMBER OF DOSES: 3
     Route: 048
  3. ALLOPURINOL [Concomitant]
     Route: 048
  4. BISOPROLOL FUMARATE [Concomitant]
  5. RAMIPRIL [Concomitant]
  6. MINITRAN [Concomitant]
  7. LEVOTHYROXINE SODIUM [Concomitant]
     Dosage: NUMBER OF DOSES: 1
     Route: 048
  8. NEXIUM [Concomitant]
     Dosage: NUMBER OF DOSES: 1
     Route: 048
  9. FERROGRAD C [Concomitant]
  10. SIMVASTATIN [Concomitant]
     Route: 048

REACTIONS (1)
  - ANAEMIA [None]
